FAERS Safety Report 8361640-0 (Version None)
Quarter: 2012Q2

REPORT INFORMATION
  Report Type: 
  Country: None (occurrence: None)
  Receive Date: 20120515
  Receipt Date: 20120502
  Transmission Date: 20120825
  Serious: No
  Sender: FDA-Public Use
  Company Number: US-ASTRAZENECA-2012SE28503

PATIENT
  Age: 44 Year
  Sex: Female
  Weight: 49.9 kg

DRUGS (3)
  1. SEROQUEL [Suspect]
     Indication: BIPOLAR DISORDER
     Route: 048
  2. METOPROLOL TARTRATE [Concomitant]
     Indication: HYPERTENSION
     Route: 048
  3. METFORMIN HCL [Concomitant]
     Indication: DIABETES MELLITUS
     Route: 048

REACTIONS (7)
  - HYPERSEXUALITY [None]
  - INTENTIONAL DRUG MISUSE [None]
  - VIOLENCE-RELATED SYMPTOM [None]
  - MANIA [None]
  - EATING DISORDER [None]
  - MOOD SWINGS [None]
  - MENTAL DISORDER [None]
